FAERS Safety Report 21809715 (Version 1)
Quarter: 2023Q1

REPORT INFORMATION
  Report Type: Spontaneous
  Country: GB (occurrence: GB)
  Receive Date: 20230103
  Receipt Date: 20230103
  Transmission Date: 20230417
  Serious: Yes (Other)
  Sender: FDA-Public Use
  Company Number: GB-ALKEM LABORATORIES LIMITED-GB-ALKEM-2022-13976

PATIENT
  Age: 46 Year
  Sex: Female

DRUGS (8)
  1. VENLAFAXINE [Suspect]
     Active Substance: VENLAFAXINE HYDROCHLORIDE
     Indication: Depression
     Dosage: 75 MILLIGRAM, BID (TWICE A DAY)
     Route: 065
  2. VENLAFAXINE [Suspect]
     Active Substance: VENLAFAXINE HYDROCHLORIDE
     Dosage: 150 MILLIGRAM (EXTENDED-RELEASE)
     Route: 065
  3. VENLAFAXINE [Suspect]
     Active Substance: VENLAFAXINE HYDROCHLORIDE
     Dosage: 112.5 MILLIGRAM (WEEK 1)
     Route: 065
     Dates: start: 20080927, end: 20081002
  4. VENLAFAXINE [Suspect]
     Active Substance: VENLAFAXINE HYDROCHLORIDE
     Dosage: 75 MILLIGRAM (WEEK 2)
     Route: 065
     Dates: start: 20081003, end: 20081010
  5. VENLAFAXINE [Suspect]
     Active Substance: VENLAFAXINE HYDROCHLORIDE
     Dosage: 37.5 MILLIGRAM (WEEK 3)
     Route: 065
     Dates: start: 20081011, end: 20081019
  6. VENLAFAXINE [Suspect]
     Active Substance: VENLAFAXINE HYDROCHLORIDE
     Dosage: 150 MILLIGRAM (REINSTATEMENT, TITRATED OVER 2 WEEKS TO THE ORIGINAL DOSE OF 150 MG)
     Route: 065
  7. LOFEPRAMINE [Concomitant]
     Active Substance: LOFEPRAMINE
     Indication: Depression
     Dosage: 280 MILLIGRAM
     Route: 065
  8. PAROXETINE [Concomitant]
     Active Substance: PAROXETINE
     Indication: Depression
     Dosage: 40 MILLIGRAM
     Route: 065

REACTIONS (5)
  - Depression [Unknown]
  - Disease recurrence [Unknown]
  - Withdrawal syndrome [Unknown]
  - Tinnitus [Not Recovered/Not Resolved]
  - Anxiety [Recovered/Resolved]
